FAERS Safety Report 7090639-X (Version None)
Quarter: 2010Q4

REPORT INFORMATION
  Report Type: 
  Country: None (occurrence: None)
  Receive Date: 20101109
  Receipt Date: 20090403
  Transmission Date: 20110411
  Serious: No
  Sender: FDA-Public Use
  Company Number: US-KINGPHARMUSA00001-K200900389

PATIENT
  Sex: Female

DRUGS (1)
  1. FLECTOR [Suspect]
     Indication: MUSCLE STRAIN
     Dosage: 1 PATCH
     Route: 061
     Dates: start: 20090402, end: 20090402

REACTIONS (2)
  - FEELING JITTERY [None]
  - INSOMNIA [None]
